FAERS Safety Report 8958816 (Version 1)
Quarter: 2012Q4

REPORT INFORMATION
  Report Type: 
  Country: MX (occurrence: MX)
  Receive Date: 20121212
  Receipt Date: 20121212
  Transmission Date: 20130627
  Serious: Yes (Hospitalization, Other)
  Sender: FDA-Public Use
  Company Number: PHHY2012MX114390

PATIENT
  Age: 68 Year
  Sex: Female

DRUGS (1)
  1. RASILEZ HCT [Suspect]
     Indication: HYPERTENSION
     Dosage: 1 DF, (300/12.5 mg) daily
     Route: 048
     Dates: start: 20121027

REACTIONS (1)
  - Pharyngitis [Not Recovered/Not Resolved]
